FAERS Safety Report 9527509 (Version 1)
Quarter: 2013Q3

REPORT INFORMATION
  Report Type: Spontaneous
  Country: US (occurrence: None)
  Receive Date: 20130913
  Receipt Date: 20130913
  Transmission Date: 20140515
  Serious: Yes (Disabling)
  Sender: FDA-Public Use
  Company Number: None

PATIENT
  Age: 57 Year
  Sex: Female
  Weight: 63.5 kg

DRUGS (3)
  1. CLOBETASOL PROPIONATE [Suspect]
     Indication: PSORIASIS
     Dosage: .05% MAYBE 6 SQUARES PER APPLICATON, PUT LIQUID ON SCALP NIGHTLY USED BOTTLE LIKE A MUSTARD SQUUZE BOTTLE TO WET AFFECTED AREA
     Route: 061
  2. PREMARIN [Concomitant]
  3. 1-A-DAY SR VITAMINS [Concomitant]

REACTIONS (1)
  - Cataract [None]
